FAERS Safety Report 24263253 (Version 2)
Quarter: 2024Q3

REPORT INFORMATION
  Report Type: Spontaneous
  Country: FR (occurrence: FR)
  Receive Date: 20240829
  Receipt Date: 20240913
  Transmission Date: 20241017
  Serious: Yes (Death, Other)
  Sender: ELI LILLY AND CO
  Company Number: FR-ELI_LILLY_AND_COMPANY-FR202408015665

PATIENT
  Age: 28 Year
  Sex: Male
  Weight: 60 kg

DRUGS (12)
  1. RETEVMO [Suspect]
     Active Substance: SELPERCATINIB
     Indication: Non-small cell lung cancer
     Dosage: UNK UNK, UNKNOWN
     Route: 048
     Dates: start: 20240809, end: 20240821
  2. SOLU-MEDROL [Concomitant]
     Active Substance: METHYLPREDNISOLONE SODIUM SUCCINATE
     Indication: Product used for unknown indication
     Dosage: 40 UNK
     Route: 042
     Dates: start: 20240521, end: 20240821
  3. SOLU-MEDROL [Concomitant]
     Active Substance: METHYLPREDNISOLONE SODIUM SUCCINATE
     Dosage: 80 MG AFTER NEUROSURGERY
  4. RIVOTRIL [Concomitant]
     Active Substance: CLONAZEPAM
     Indication: Product used for unknown indication
     Dosage: 2 MG
     Route: 042
     Dates: start: 20240620, end: 20240821
  5. RIVOTRIL [Concomitant]
     Active Substance: CLONAZEPAM
     Dosage: 1 VIAL AFTER THE NEUROSURGERY
  6. KEPPRA [Concomitant]
     Active Substance: LEVETIRACETAM
     Indication: Product used for unknown indication
     Dosage: 1 G, BID
     Route: 048
     Dates: start: 20240818, end: 20240821
  7. GABAPENTIN [Concomitant]
     Active Substance: GABAPENTIN
     Indication: Product used for unknown indication
     Dosage: 100 MG, TID
     Route: 048
     Dates: start: 20240818, end: 20240821
  8. PHOCYTAN [Concomitant]
     Active Substance: .ALPHA.-GLUCOSE-1-PHOSPHATE
     Indication: Product used for unknown indication
     Dosage: 2 VIALS
     Route: 048
     Dates: start: 20240815, end: 20240821
  9. NALOXEGOL OXALATE [Concomitant]
     Active Substance: NALOXEGOL OXALATE
     Indication: Product used for unknown indication
     Dosage: 25 MG
     Route: 048
     Dates: start: 20240807, end: 20240821
  10. POLYETHYLENE GLYCOLS [Concomitant]
     Active Substance: POLYETHYLENE GLYCOLS
     Indication: Product used for unknown indication
     Dosage: 1 PACKET
     Route: 048
     Dates: start: 20240806, end: 20240821
  11. CEFTAZIDIME [Concomitant]
     Active Substance: CEFTAZIDIME
     Indication: Nosocomial infection
     Dosage: 2 G, TID
     Dates: start: 20240805, end: 20240813
  12. LINEZOLID [Concomitant]
     Active Substance: LINEZOLID
     Indication: Nosocomial infection
     Dosage: UNK
     Route: 048
     Dates: start: 20240805, end: 20240813

REACTIONS (5)
  - Septic shock [Fatal]
  - Bacterial sepsis [Unknown]
  - Neurological decompensation [Unknown]
  - Respiratory failure [Unknown]
  - Off label use [Unknown]

NARRATIVE: CASE EVENT DATE: 20240820
